FAERS Safety Report 4619901-4 (Version None)
Quarter: 2005Q1

REPORT INFORMATION
  Report Type: 
  Country: None (occurrence: None)
  Receive Date: 20050324
  Receipt Date: 20050315
  Transmission Date: 20050727
  Serious: Yes (Hospitalization)
  Sender: FDA-Public Use
  Company Number: SUS1-2005-00214

PATIENT
  Age: 24 Year
  Sex: Male

DRUGS (1)
  1. PENTASA [Suspect]
     Indication: CROHN'S DISEASE
     Dosage: 2 G, ORAL
     Route: 048

REACTIONS (1)
  - POLYCYTHAEMIA [None]
